FAERS Safety Report 11873777 (Version 8)
Quarter: 2016Q4

REPORT INFORMATION
  Report Type: Report from Study
  Country: US (occurrence: US)
  Receive Date: 20151229
  Receipt Date: 20161217
  Transmission Date: 20170206
  Serious: Yes (Hospitalization, Other)
  Sender: FDA-Public Use
  Company Number: US-UCBSA-2015042420

PATIENT
  Age: 33 Year
  Sex: Female

DRUGS (9)
  1. CERTOLIZUMAB PEGOL [Suspect]
     Active Substance: CERTOLIZUMAB PEGOL
     Indication: CROHN^S DISEASE
     Dosage: 400 MG, EV 3 WEEKS
     Dates: end: 20160728
  2. MERCAPTOPURINE. [Concomitant]
     Active Substance: MERCAPTOPURINE
     Indication: PROPHYLAXIS
     Dosage: 50 MG DAILY
     Route: 048
     Dates: start: 201509
  3. CERTOLIZUMAB PEGOL [Suspect]
     Active Substance: CERTOLIZUMAB PEGOL
     Indication: COLITIS ULCERATIVE
     Dosage: 400 MG, EV 2 WEEKS(QOW)
     Route: 058
     Dates: start: 20150930, end: 2015
  4. CIPROFLOXACIN. [Concomitant]
     Active Substance: CIPROFLOXACIN
     Indication: PRODUCT USED FOR UNKNOWN INDICATION
     Dosage: UNK
  5. CIPROFLOXACIN. [Concomitant]
     Active Substance: CIPROFLOXACIN
     Dosage: UNK
     Dates: start: 201604
  6. FLAGYL [Concomitant]
     Active Substance: METRONIDAZOLE\METRONIDAZOLE HYDROCHLORIDE
     Dosage: UNK
     Dates: start: 201604
  7. CERTOLIZUMAB PEGOL [Suspect]
     Active Substance: CERTOLIZUMAB PEGOL
     Indication: OFF LABEL USE
     Dosage: 400 MG, EV 4 WEEKS
     Route: 058
     Dates: start: 2015
  8. FLAGYL [Concomitant]
     Active Substance: METRONIDAZOLE\METRONIDAZOLE HYDROCHLORIDE
     Indication: PRODUCT USED FOR UNKNOWN INDICATION
     Dosage: UNK
  9. AMOXICILLIN. [Concomitant]
     Active Substance: AMOXICILLIN
     Indication: PRODUCT USED FOR UNKNOWN INDICATION
     Dosage: UNK

REACTIONS (10)
  - Colitis ulcerative [Recovering/Resolving]
  - Fatigue [Not Recovered/Not Resolved]
  - Subcutaneous abscess [Recovered/Resolved]
  - Drug ineffective [Unknown]
  - Off label use [Unknown]
  - White blood cell count increased [Recovered/Resolved]
  - Myalgia [Not Recovered/Not Resolved]
  - Nasopharyngitis [Not Recovered/Not Resolved]
  - Sinusitis [Not Recovered/Not Resolved]
  - Intentional product misuse [Unknown]

NARRATIVE: CASE EVENT DATE: 2015
